FAERS Safety Report 9405481 (Version 5)
Quarter: 2015Q1

REPORT INFORMATION
  Report Type: Spontaneous
  Country: US (occurrence: US)
  Receive Date: 20130717
  Receipt Date: 20150202
  Transmission Date: 20150721
  Serious: Yes (Hospitalization, Other)
  Sender: FDA-Public Use
  Company Number: US-009507513-1307USA004654

PATIENT
  Sex: Female
  Weight: 53.97 kg

DRUGS (3)
  1. VITAMINS (UNSPECIFIED) [Concomitant]
     Active Substance: VITAMINS
     Dosage: 1 DF, QD
     Dates: start: 2005, end: 2012
  2. FOSAMAX PLUS D [Suspect]
     Active Substance: ALENDRONATE SODIUM\CHOLECALCIFEROL
     Indication: OSTEOPOROSIS
     Dosage: 70 MG, QW
     Route: 048
     Dates: start: 200501, end: 200812
  3. CALCIUM (UNSPECIFIED) [Concomitant]
     Active Substance: CALCIUM
     Dosage: 1 DF, QD
     Dates: start: 2005, end: 2012

REACTIONS (25)
  - Hip fracture [Unknown]
  - Rotator cuff repair [Unknown]
  - Hypertension [Unknown]
  - Chronic obstructive pulmonary disease [Unknown]
  - Thoracic vertebral fracture [Unknown]
  - Asthenia [Unknown]
  - Closed fracture manipulation [Not Recovered/Not Resolved]
  - Blood potassium decreased [Unknown]
  - Femur fracture [Not Recovered/Not Resolved]
  - Internal fixation of fracture [Unknown]
  - Anaemia [Unknown]
  - Anxiety [Unknown]
  - Skin abrasion [Recovering/Resolving]
  - Fall [Unknown]
  - Arthropathy [Unknown]
  - Pneumonia [Unknown]
  - Cataract [Unknown]
  - Contusion [Unknown]
  - Rib fracture [Unknown]
  - Hip fracture [Unknown]
  - Internal fixation of fracture [Unknown]
  - Femur fracture [Unknown]
  - Asthma [Unknown]
  - Depression [Unknown]
  - Osteopenia [Unknown]

NARRATIVE: CASE EVENT DATE: 201008
